FAERS Safety Report 10038644 (Version 1)
Quarter: 2014Q1

REPORT INFORMATION
  Report Type: Report from Study
  Country: CA (occurrence: CA)
  Receive Date: 20140326
  Receipt Date: 20140326
  Transmission Date: 20141002
  Serious: Yes (Hospitalization, Other)
  Sender: FDA-Public Use
  Company Number: CA-ABBVIE-14P-028-1214061-00

PATIENT
  Age: 56 Year
  Sex: Female
  Weight: 55.84 kg

DRUGS (2)
  1. HUMIRA [Suspect]
     Indication: RHEUMATOID ARTHRITIS
     Route: 058
     Dates: start: 20060720, end: 20131227
  2. HUMIRA [Suspect]
     Route: 058
     Dates: start: 20140314

REACTIONS (2)
  - Arthritis [Recovering/Resolving]
  - Procedural pain [Unknown]
